FAERS Safety Report 8788319 (Version 1)
Quarter: 2012Q4

REPORT INFORMATION
  Report Type: Report from Study
  Country: US (occurrence: US)
  Receive Date: 20120914
  Receipt Date: 20120914
  Transmission Date: 20130627
  Serious: No
  Sender: FDA-Public Use
  Company Number: US-VERTEX PHARMACEUTICAL INC.-AE-2012-011332

PATIENT
  Age: 54 Year
  Sex: Female
  Weight: 66.2 kg

DRUGS (14)
  1. INCIVEK [Suspect]
     Indication: HEPATITIS C
     Route: 048
     Dates: start: 20120620
  2. PEGASYS [Concomitant]
     Indication: HEPATITIS C
     Route: 058
     Dates: start: 20120620
  3. RIBAVIRIN [Concomitant]
     Indication: HEPATITIS C
     Route: 048
     Dates: start: 20120620
  4. SYNTHROID [Concomitant]
  5. ASPIRIN [Concomitant]
  6. MAGNESIUM OXIDE [Concomitant]
  7. BLACK COHOSH HOT FLASH [Concomitant]
  8. COQ-10 [Concomitant]
  9. FISH OIL [Concomitant]
  10. CVS VITAMIN D [Concomitant]
  11. CVD FLEXSEED [Concomitant]
  12. CVS VITAMIN C [Concomitant]
  13. CVS VITAMIN E [Concomitant]
  14. CVS MILK THISTLE [Concomitant]

REACTIONS (7)
  - Malaise [Unknown]
  - Feeling hot [Unknown]
  - Abdominal distension [Unknown]
  - Rash macular [Unknown]
  - Nausea [Recovered/Resolved]
  - Vomiting [Unknown]
  - Pruritus [Recovered/Resolved]
